FAERS Safety Report 8853768 (Version 4)
Quarter: 2013Q2

REPORT INFORMATION
  Report Type: Report from Study
  Country: JP (occurrence: JP)
  Receive Date: 20121023
  Receipt Date: 20130618
  Transmission Date: 20140414
  Serious: Yes (Other)
  Sender: FDA-Public Use
  Company Number: JP-009507513-1210JPN008780

PATIENT
  Age: 51 Year
  Sex: Female
  Weight: 62 kg

DRUGS (13)
  1. PEGINTRON [Suspect]
     Indication: CHRONIC HEPATITIS C
     Dosage: 1.5 MICROGRAM PER KILOGRAM, QW
     Route: 058
     Dates: start: 20120821, end: 20130128
  2. REBETOL [Suspect]
     Indication: CHRONIC HEPATITIS C
     Dosage: 800 MG, QD
     Route: 048
     Dates: start: 20120821, end: 20120918
  3. REBETOL [Suspect]
     Dosage: 400 MG, QD
     Route: 048
     Dates: start: 20120918, end: 20120924
  4. REBETOL [Suspect]
     Dosage: 600 MG, QD
     Route: 048
     Dates: start: 20120924, end: 20121009
  5. REBETOL [Suspect]
     Dosage: 400 MG, QD
     Route: 048
     Dates: start: 20121009, end: 20121022
  6. REBETOL [Suspect]
     Dosage: 600 MG, QD
     Route: 048
     Dates: start: 20121022, end: 20121029
  7. REBETOL [Suspect]
     Dosage: 800 MG, QD
     Route: 048
     Dates: start: 20121029, end: 20130204
  8. TELAVIC [Suspect]
     Indication: CHRONIC HEPATITIS C
     Dosage: 2250 MG, QD
     Route: 048
     Dates: start: 20120821, end: 20120918
  9. TELAVIC [Suspect]
     Dosage: 1500MG, QD
     Route: 048
     Dates: start: 20120918, end: 20121111
  10. NEUROTROPIN [Concomitant]
     Indication: PAIN
     Dosage: 4 DF, QD
     Route: 048
  11. LIVALO [Concomitant]
     Indication: DYSLIPIDAEMIA
     Dosage: 1 MG, QD: FORMULATION: POR
     Route: 048
  12. SENNOSIDES [Concomitant]
     Indication: CONSTIPATION
     Dosage: 24 MG, PRN, PER DAY
     Route: 048
     Dates: start: 20121105
  13. CALONAL [Concomitant]
     Indication: PROPHYLAXIS
     Dosage: 400 MG, QD, AS NEEDED
     Route: 048
     Dates: start: 20120823

REACTIONS (1)
  - Anaemia [Not Recovered/Not Resolved]
